FAERS Safety Report 13582302 (Version 29)
Quarter: 2025Q3

REPORT INFORMATION
  Report Type: Report from Study
  Country: AU (occurrence: AU)
  Receive Date: 20170525
  Receipt Date: 20250826
  Transmission Date: 20251020
  Serious: Yes (Hospitalization)
  Sender: SANOFI AVENTIS
  Company Number: AU-SA-2017SA095064

PATIENT
  Age: 39 Year
  Sex: Female

DRUGS (27)
  1. ALEMTUZUMAB [Suspect]
     Active Substance: ALEMTUZUMAB
     Indication: Relapsing multiple sclerosis
     Dosage: 12 MG,QD
     Route: 041
     Dates: start: 20170501, end: 20170503
  2. ALEMTUZUMAB [Suspect]
     Active Substance: ALEMTUZUMAB
     Dosage: 12 MG,QD
     Route: 041
     Dates: start: 20160418, end: 20160422
  3. ALEMTUZUMAB [Suspect]
     Active Substance: ALEMTUZUMAB
     Route: 042
  4. MAVENCLAD [Concomitant]
     Active Substance: CLADRIBINE
     Indication: Multiple sclerosis
     Route: 048
     Dates: start: 202103, end: 202103
  5. THYROXINE [Concomitant]
     Active Substance: LEVOTHYROXINE
     Dosage: 20 UG, QD
  6. THYROXINE [Concomitant]
     Active Substance: LEVOTHYROXINE
     Route: 048
     Dates: start: 20161028, end: 20170506
  7. THYROXINE [Concomitant]
     Active Substance: LEVOTHYROXINE
     Route: 048
     Dates: start: 20170507, end: 20180422
  8. THYROXINE [Concomitant]
     Active Substance: LEVOTHYROXINE
     Route: 048
     Dates: start: 20180423, end: 20180615
  9. THYROXINE [Concomitant]
     Active Substance: LEVOTHYROXINE
     Route: 048
     Dates: start: 20180616, end: 20220731
  10. THYROXINE [Concomitant]
     Active Substance: LEVOTHYROXINE
     Route: 048
     Dates: start: 20220801, end: 20231221
  11. CALTRATE [Concomitant]
     Active Substance: CALCIUM CARBONATE
     Route: 048
     Dates: start: 2006
  12. CALTRATE [Concomitant]
     Active Substance: CALCIUM CARBONATE
     Route: 048
     Dates: start: 20220821
  13. CALTRATE [Concomitant]
     Active Substance: CALCIUM CARBONATE
     Route: 048
     Dates: start: 20220801, end: 20240129
  14. RANITIDINE [Concomitant]
     Active Substance: RANITIDINE
     Indication: Prophylaxis
     Route: 048
     Dates: start: 20170430, end: 20170514
  15. LORATADINE [Concomitant]
     Active Substance: LORATADINE
     Indication: Prophylaxis
     Route: 048
     Dates: start: 20170430, end: 20170514
  16. VALACYCLOVIR HYDROCHLORIDE [Concomitant]
     Active Substance: VALACYCLOVIR HYDROCHLORIDE
     Indication: Prophylaxis
     Route: 048
     Dates: start: 20170430
  17. TEMAZEPAM [Concomitant]
     Active Substance: TEMAZEPAM
     Indication: Prophylaxis
     Route: 048
     Dates: start: 20170501, end: 20170514
  18. ENOXAPARIN [Concomitant]
     Active Substance: ENOXAPARIN
     Indication: Prophylaxis
     Route: 058
     Dates: start: 20200818, end: 20200819
  19. AMANTADINE [Concomitant]
     Active Substance: AMANTADINE
     Indication: Multiple sclerosis
     Route: 048
     Dates: start: 20160623
  20. ACETAMINOPHEN [Concomitant]
     Active Substance: ACETAMINOPHEN
     Indication: Prophylaxis
     Route: 048
     Dates: start: 20170501, end: 20170514
  21. METHYLPREDNISOLONE [Concomitant]
     Active Substance: METHYLPREDNISOLONE
     Indication: Prophylaxis
     Route: 042
     Dates: start: 20170501, end: 20170503
  22. POTASSIUM CHLORIDE [Concomitant]
     Active Substance: POTASSIUM CHLORIDE
     Indication: Prophylaxis
     Route: 048
     Dates: start: 20190613
  23. CALCITRIOL [Concomitant]
     Active Substance: CALCITRIOL
     Indication: Prophylaxis
     Route: 048
     Dates: start: 20190612, end: 20220731
  24. CALCITRIOL [Concomitant]
     Active Substance: CALCITRIOL
     Route: 048
     Dates: start: 20220801, end: 20231221
  25. NICOTINE [Concomitant]
     Active Substance: NICOTINE
     Indication: Prophylaxis
     Route: 003
     Dates: start: 20170503, end: 20170503
  26. NICOTINE [Concomitant]
     Active Substance: NICOTINE
     Route: 003
     Dates: start: 20200817, end: 20200819
  27. ENOXAPARIN SODIUM [Concomitant]
     Active Substance: ENOXAPARIN SODIUM
     Indication: Prophylaxis
     Route: 058
     Dates: start: 20220801, end: 20220801

REACTIONS (28)
  - Electrolyte imbalance [Recovered/Resolved]
  - Hypocalcaemia [Recovered/Resolved]
  - Urosepsis [Recovered/Resolved]
  - Dyspnoea [Recovered/Resolved]
  - Respiratory syncytial virus infection [Recovered/Resolved]
  - Renal pain [Recovered/Resolved]
  - Back pain [Recovered/Resolved]
  - Headache [Recovered/Resolved]
  - Diarrhoea [Recovered/Resolved]
  - Fall [Recovered/Resolved]
  - Chest pain [Recovered/Resolved]
  - Non-cardiac chest pain [Recovered/Resolved]
  - Non-cardiac chest pain [Recovered/Resolved]
  - Liver function test abnormal [Not Recovered/Not Resolved]
  - Plantar fasciitis [Not Recovered/Not Resolved]
  - Peripheral swelling [Recovered/Resolved]
  - Depression [Not Recovered/Not Resolved]
  - Pruritus [Not Recovered/Not Resolved]
  - Insomnia [Not Recovered/Not Resolved]
  - Tinea cruris [Recovered/Resolved]
  - Tinea pedis [Recovered/Resolved]
  - Diarrhoea [Not Recovered/Not Resolved]
  - Influenza [Recovered/Resolved]
  - Multiple sclerosis relapse [Recovered/Resolved]
  - Upper respiratory tract infection [Recovered/Resolved]
  - Drug abuse [Not Recovered/Not Resolved]
  - Urinary tract infection [Recovered/Resolved]
  - Back pain [Not Recovered/Not Resolved]

NARRATIVE: CASE EVENT DATE: 20170501
